FAERS Safety Report 8270874-5 (Version None)
Quarter: 2012Q2

REPORT INFORMATION
  Report Type: 
  Country: None (occurrence: None)
  Receive Date: 20120410
  Receipt Date: 20120410
  Transmission Date: 20120825
  Serious: Yes (Other)
  Sender: FDA-Public Use
  Company Number: None

PATIENT
  Sex: Male

DRUGS (1)
  1. HYALURONATE SODIUM SYNVISC ONE [Suspect]
     Indication: OSTEOARTHRITIS
     Dosage: ONE INJECTION
     Dates: start: 20120406, end: 20120406

REACTIONS (6)
  - INJECTION SITE INFLAMMATION [None]
  - ABASIA [None]
  - INJECTION SITE SWELLING [None]
  - ARTHRALGIA [None]
  - INJECTION SITE JOINT MOVEMENT IMPAIRMENT [None]
  - SKIN WARM [None]
